FAERS Safety Report 4824767-3 (Version None)
Quarter: 2005Q4

REPORT INFORMATION
  Report Type: 
  Country: None (occurrence: None)
  Receive Date: 20051108
  Receipt Date: 20051021
  Transmission Date: 20060501
  Serious: Yes (Hospitalization)
  Sender: FDA-Public Use
  Company Number: DSA_27084_2005

PATIENT
  Age: 74 Year
  Sex: Female
  Weight: 34 kg

DRUGS (10)
  1. ENALAPRIL MALEATE [Suspect]
     Indication: HYPERTENSION
     Dosage: DF PO
     Route: 048
  2. ACENALIN [Concomitant]
  3. ANPLAG [Concomitant]
  4. CALSLOT [Concomitant]
  5. EXCELASE [Concomitant]
  6. FOIPAN [Concomitant]
  7. GASTER [Concomitant]
  8. SELBEX [Concomitant]
  9. CELLULOSE, MICROCRYSTALINE [Concomitant]
  10. HEPARIN [Concomitant]

REACTIONS (21)
  - ABDOMINAL PAIN UPPER [None]
  - BASOPHIL PERCENTAGE DECREASED [None]
  - BLOOD ALKALINE PHOSPHATASE INCREASED [None]
  - BLOOD CALCIUM INCREASED [None]
  - BLOOD CHLORIDE DECREASED [None]
  - BLOOD GLUCOSE INCREASED [None]
  - BLOOD LACTATE DEHYDROGENASE INCREASED [None]
  - BLOOD POTASSIUM DECREASED [None]
  - BLOOD PRESSURE DECREASED [None]
  - BLOOD SODIUM DECREASED [None]
  - EOSINOPHIL PERCENTAGE DECREASED [None]
  - HAEMATOCRIT DECREASED [None]
  - HAEMOGLOBIN DECREASED [None]
  - ISCHAEMIA [None]
  - LYMPHOCYTE PERCENTAGE DECREASED [None]
  - NEUTROPHIL PERCENTAGE INCREASED [None]
  - PANCREATITIS ACUTE [None]
  - PLATELET COUNT DECREASED [None]
  - PROTEIN TOTAL DECREASED [None]
  - RED BLOOD CELL COUNT DECREASED [None]
  - WHITE BLOOD CELL COUNT INCREASED [None]
